FAERS Safety Report 6429628-4 (Version None)
Quarter: 2009Q4

REPORT INFORMATION
  Report Type: 
  Country: None (occurrence: None)
  Receive Date: 20091103
  Receipt Date: 20091019
  Transmission Date: 20100525
  Serious: Yes (Hospitalization)
  Sender: FDA-Public Use
  Company Number: 02100-JPN-05-0530

PATIENT
  Age: 60 Year
  Sex: Female
  Weight: 53 kg

DRUGS (4)
  1. PLETAL [Suspect]
     Indication: CEREBRAL INFARCTION
     Dosage: 81 MG, QD ORAL
     Route: 048
     Dates: start: 20050315, end: 20051030
  2. KETAS (IBUDILAST) [Concomitant]
  3. HYPOCA (BARNIDIPINE) [Concomitant]
  4. MICARDIS [Concomitant]

REACTIONS (2)
  - ABDOMINAL PAIN [None]
  - LOWER GASTROINTESTINAL HAEMORRHAGE [None]
